FAERS Safety Report 8759744 (Version 1)
Quarter: 2012Q4

REPORT INFORMATION
  Report Type: 
  Country: CN (occurrence: CN)
  Receive Date: 20120829
  Receipt Date: 20120829
  Transmission Date: 20130627
  Serious: Yes (Other)
  Sender: FDA-Public Use
  Company Number: CN-ROCHE-1103113

PATIENT
  Age: 4 Year
  Sex: Female
  Weight: 27 kg

DRUGS (2)
  1. ROCEPHIN [Suspect]
     Indication: FEBRILE INFECTION
     Route: 041
     Dates: start: 20110407, end: 20110412
  2. GLUCOSE [Suspect]
     Indication: FEBRILE INFECTION
     Route: 041
     Dates: start: 20110407, end: 20110412

REACTIONS (1)
  - VIIth nerve injury [Recovering/Resolving]
